FAERS Safety Report 9636944 (Version 1)
Quarter: 2013Q4

REPORT INFORMATION
  Report Type: Spontaneous
  Country: CH (occurrence: CH)
  Receive Date: 20131022
  Receipt Date: 20131022
  Transmission Date: 20140711
  Serious: Yes (Other)
  Sender: FDA-Public Use
  Company Number: CH-AMGEN-CHESP2013073242

PATIENT
  Sex: Female

DRUGS (2)
  1. PROLIA [Suspect]
     Indication: OSTEOPOROSIS POSTMENOPAUSAL
     Dosage: UNK
     Route: 065
     Dates: start: 201209
  2. CHEMOTHERAPEUTICS [Concomitant]
     Indication: WALDENSTROM^S MACROGLOBULINAEMIA
     Dosage: UNK

REACTIONS (2)
  - Bronchitis [Unknown]
  - Skin disorder [Unknown]
